FAERS Safety Report 6294426-1 (Version None)
Quarter: 2009Q3

REPORT INFORMATION
  Report Type: 
  Country: None (occurrence: None)
  Receive Date: 20090803
  Receipt Date: 20090723
  Transmission Date: 20100115
  Serious: Yes (Hospitalization, Other)
  Sender: FDA-Public Use
  Company Number: US-ROCHE-645812

PATIENT
  Age: 56 Year
  Sex: Female

DRUGS (1)
  1. BONIVA [Suspect]
     Indication: BONE DENSITOMETRY
     Route: 048
     Dates: end: 20080601

REACTIONS (3)
  - CONVULSION [None]
  - INTRACRANIAL ANEURYSM [None]
  - SPINAL COLUMN STENOSIS [None]
